FAERS Safety Report 24897608 (Version 1)
Quarter: 2025Q1

REPORT INFORMATION
  Report Type: Spontaneous
  Country: CA (occurrence: CA)
  Receive Date: 20250129
  Receipt Date: 20250129
  Transmission Date: 20250408
  Serious: Yes (Death)
  Sender: DR REDDYS
  Company Number: None

PATIENT
  Age: 48 Year
  Sex: Male

DRUGS (3)
  1. CABAZITAXEL [Suspect]
     Active Substance: CABAZITAXEL
     Indication: Product used for unknown indication
  2. DOCETAXEL [Suspect]
     Active Substance: DOCETAXEL
     Indication: Product used for unknown indication
  3. ELIGARD [Suspect]
     Active Substance: LEUPROLIDE ACETATE
     Indication: Prostate cancer
     Dosage: POWDER FOR SUSPENSION, SUSTAINED-RELEASE
     Route: 058

REACTIONS (10)
  - Back pain [Fatal]
  - Chest discomfort [Fatal]
  - Dyspnoea [Fatal]
  - Erythema [Fatal]
  - Hot flush [Fatal]
  - Hyperhidrosis [Fatal]
  - Injection site pain [Fatal]
  - Paraesthesia [Fatal]
  - Rash [Fatal]
  - Urticaria [Fatal]
